FAERS Safety Report 8152166-8 (Version None)
Quarter: 2012Q1

REPORT INFORMATION
  Report Type: 
  Country: None (occurrence: None)
  Receive Date: 20120221
  Receipt Date: 20120216
  Transmission Date: 20120608
  Serious: Yes (Other)
  Sender: FDA-Public Use
  Company Number: JP-PFIZER INC-2012042630

PATIENT

DRUGS (3)
  1. ZOSYN [Suspect]
  2. CLINDAMYCIN HCL [Suspect]
  3. MEROPENEM [Suspect]

REACTIONS (1)
  - INTERSTITIAL LUNG DISEASE [None]
